FAERS Safety Report 16708529 (Version 1)
Quarter: 2019Q3

REPORT INFORMATION
  Report Type: Spontaneous
  Country: AT (occurrence: AT)
  Receive Date: 20190816
  Receipt Date: 20190816
  Transmission Date: 20191004
  Serious: Yes (Hospitalization)
  Sender: FDA-Public Use
  Company Number: AT-CELLTRION INC.-2019AT023806

PATIENT

DRUGS (13)
  1. PREDNISOLONE. [Suspect]
     Active Substance: PREDNISOLONE
     Dosage: 12.5 MG, DAILY
     Route: 048
     Dates: end: 201811
  2. INFLIXIMAB PFIZER (UNKNOWN) [Suspect]
     Active Substance: INFLIXIMAB
     Dosage: INTERVAL REDUCED TO EVERY 4 WEEKS
     Dates: start: 201709, end: 201811
  3. PREDNISOLONE. [Suspect]
     Active Substance: PREDNISOLONE
     Dosage: 25 MG, DAILY
     Route: 048
     Dates: start: 201710
  4. AZATHIOPRINE. [Concomitant]
     Active Substance: AZATHIOPRINE
     Indication: COLITIS ULCERATIVE
     Dosage: 50 MG, DAILY
     Dates: start: 201710
  5. PREDNISOLONE. [Suspect]
     Active Substance: PREDNISOLONE
     Dosage: 20 MG, DAILY
     Route: 048
     Dates: start: 201711, end: 201802
  6. PREDNISOLONE. [Suspect]
     Active Substance: PREDNISOLONE
     Dosage: 37.5 MG, DAILY
     Route: 048
     Dates: start: 201704
  7. AZATHIOPRINE. [Concomitant]
     Active Substance: AZATHIOPRINE
     Dosage: 150 MG, DAILY
     Dates: start: 201803, end: 201811
  8. MESALAZINE [Concomitant]
     Active Substance: MESALAMINE
     Indication: COLITIS ULCERATIVE
     Dosage: 3000 MG, DAILY
  9. PREDNISOLONE. [Suspect]
     Active Substance: PREDNISOLONE
     Dosage: 12.5 MG, DAILY
     Route: 048
     Dates: start: 201705, end: 201709
  10. PREDNISOLONE. [Suspect]
     Active Substance: PREDNISOLONE
     Dosage: 50 MG, DAILY
     Route: 048
     Dates: start: 201709
  11. PREDNISOLONE. [Suspect]
     Active Substance: PREDNISOLONE
     Dosage: 5 MG, DAILY
     Route: 048
     Dates: start: 201803
  12. INFLIXIMAB PFIZER (UNKNOWN) [Suspect]
     Active Substance: INFLIXIMAB
     Indication: COLITIS ULCERATIVE
     Dosage: INFUSIONS
     Dates: start: 201705
  13. PREDNISOLONE. [Suspect]
     Active Substance: PREDNISOLONE
     Indication: COLITIS ULCERATIVE
     Dosage: UNK
     Dates: start: 2013

REACTIONS (6)
  - Treatment failure [Unknown]
  - Drug level above therapeutic [Unknown]
  - Diarrhoea haemorrhagic [Recovering/Resolving]
  - Night sweats [Unknown]
  - Drug specific antibody present [Unknown]
  - Cytomegalovirus infection [Recovered/Resolved]

NARRATIVE: CASE EVENT DATE: 201708
